FAERS Safety Report 23059688 (Version 1)
Quarter: 2023Q4

REPORT INFORMATION
  Report Type: Spontaneous
  Country: US (occurrence: US)
  Receive Date: 20231012
  Receipt Date: 20231012
  Transmission Date: 20240109
  Serious: No
  Sender: FDA-Public Use
  Company Number: US-ABBVIE-5442086

PATIENT
  Sex: Male

DRUGS (1)
  1. CREON [Suspect]
     Active Substance: PANCRELIPASE AMYLASE\PANCRELIPASE LIPASE\PANCRELIPASE PROTEASE
     Indication: Product used for unknown indication
     Dosage: 2 CAPSULES BEFORE MEAL AND ONE CAP BEFORE SNACK?STRENGTH 36000 UNIT
     Route: 048

REACTIONS (3)
  - Asthenia [Unknown]
  - Arthralgia [Unknown]
  - Hypoglycaemia [Unknown]
